FAERS Safety Report 21245004 (Version 1)
Quarter: 2022Q3

REPORT INFORMATION
  Report Type: Spontaneous
  Country: SA (occurrence: SA)
  Receive Date: 20220823
  Receipt Date: 20220823
  Transmission Date: 20221027
  Serious: Yes (Hospitalization, Other)
  Sender: FDA-Public Use
  Company Number: SA-ACERUSPHRM-2022-SA-000001

PATIENT
  Age: 28 Year
  Sex: Male

DRUGS (4)
  1. TESTOSTERONE [Suspect]
     Active Substance: TESTOSTERONE
     Indication: Product use in unapproved indication
  2. ACYCLOVIR [Concomitant]
     Active Substance: ACYCLOVIR
     Indication: Varicella encephalitis
     Route: 042
  3. MUPIROCIN [Concomitant]
     Active Substance: MUPIROCIN
     Indication: Herpes zoster
     Route: 061
  4. VALACYCLOVIR [Concomitant]
     Active Substance: VALACYCLOVIR HYDROCHLORIDE
     Indication: Herpes zoster

REACTIONS (3)
  - Disseminated varicella [Recovering/Resolving]
  - Varicella encephalitis [Recovering/Resolving]
  - Product use in unapproved indication [Unknown]
